FAERS Safety Report 5004972-6 (Version None)
Quarter: 2006Q2

REPORT INFORMATION
  Report Type: 
  Country: None (occurrence: None)
  Receive Date: 20060517
  Receipt Date: 20060511
  Transmission Date: 20061013
  Serious: Yes (Hospitalization)
  Sender: FDA-Public Use
  Company Number: CA-BOEHRINGER INGELHEIM PHARMACEUTICALS, INC.-2006-CN-00260CN

PATIENT
  Sex: Female

DRUGS (1)
  1. MOBICOX TABLETS [Suspect]
     Dosage: 1 PER DAY IF NEEDED

REACTIONS (3)
  - POLLAKIURIA [None]
  - PYREXIA [None]
  - RENAL IMPAIRMENT [None]
